FAERS Safety Report 9159031 (Version 1)
Quarter: 2013Q1

REPORT INFORMATION
  Report Type: Spontaneous
  Country: FR (occurrence: None)
  Receive Date: 20130213
  Receipt Date: 20130213
  Transmission Date: 20140127
  Serious: Yes (Hospitalization)
  Sender: FDA-Public Use
  Company Number: DSM-2013-00180

PATIENT
  Age: 88 Year
  Sex: Male

DRUGS (4)
  1. COOLMETEC [Suspect]
     Indication: HYPERTENSION
     Route: 048
     Dates: end: 20110606
  2. AVODART (DUTASTERIDE) (DUTASTERIDE) [Concomitant]
  3. ALFUZOSINE (ALFUZOSIN) (ALFUZOSIN) [Concomitant]
  4. ARICEPT (DONEPEZIL) (DONEPEZIL) [Concomitant]

REACTIONS (5)
  - Dysarthria [None]
  - Loss of consciousness [None]
  - Malaise [None]
  - Dizziness [None]
  - Dehydration [None]
